FAERS Safety Report 5802085-4 (Version None)
Quarter: 2008Q3

REPORT INFORMATION
  Report Type: 
  Country: None (occurrence: None)
  Receive Date: 20080707
  Receipt Date: 20080625
  Transmission Date: 20090109
  Serious: Yes (Other)
  Sender: FDA-Public Use
  Company Number: PHEH2008US05295

PATIENT
  Sex: Female
  Weight: 55 kg

DRUGS (21)
  1. GLEEVEC [Suspect]
     Indication: CHRONIC MYELOID LEUKAEMIA
     Dosage: 400 MG, QD
     Route: 048
     Dates: start: 20060814, end: 20080519
  2. GLEEVEC [Suspect]
     Dosage: 400 MG, QD
     Route: 048
     Dates: start: 20080601
  3. MACRODANTIN [Concomitant]
     Dosage: 50 AS DIRECTED
     Route: 048
     Dates: start: 20060801
  4. FLUCONAZOLE [Concomitant]
     Dosage: 150MG MONTHLY
     Route: 048
     Dates: start: 20060829
  5. CALCIUM CITRATE W/VITAMIN D NOS [Concomitant]
  6. CENTRUM SILVER [Concomitant]
     Dosage: 1 PO QD
     Route: 048
  7. CLARINEX                                /USA/ [Concomitant]
     Dosage: 5 MG, QD
     Route: 048
  8. COLACE [Concomitant]
     Dosage: 50 MG, PRN
     Route: 048
  9. FOSAMAX PLUS D [Concomitant]
     Dosage: 70MG-2800MG AS DIRECTED
     Route: 048
  10. GLUCOSAMINE /CHONDROITIN /MSM [Concomitant]
  11. IBUPROFEN [Concomitant]
     Dosage: 200 MG, TID PRN
     Route: 048
  12. MIRALAX [Concomitant]
     Dosage: 17 GM, QD AS DIRECTED
     Route: 048
  13. NASACORT AQ [Concomitant]
     Dosage: 1 PUFFS AS DIRECTED
  14. NYSTATIN [Concomitant]
     Dosage: 5 ML SWISH AND SWALLOW, TID
  15. PATANOL [Concomitant]
     Dosage: 1 GTT, BOTH EYES AS DIRECTED
  16. PREDNISONE TAB [Concomitant]
     Dosage: 2.5 MG, QD AS DIRECTED
     Route: 048
  17. PREMARIN [Concomitant]
  18. PYRIDIUM [Concomitant]
  19. SPECTAZOLE [Concomitant]
     Dosage: 1 TOPICAL APPLICATION AS DIRECTED
     Route: 061
  20. VAGIFEM [Concomitant]
     Dosage: 25 MCG, TIW
     Route: 048
  21. XANAX [Concomitant]
     Dosage: 0.25 MG, BID PRN ANXIETY
     Route: 048

REACTIONS (6)
  - ANTINUCLEAR ANTIBODY POSITIVE [None]
  - CD4 LYMPHOCYTES [None]
  - PYREXIA [None]
  - RASH [None]
  - SYSTEMIC LUPUS ERYTHEMATOSUS [None]
  - WEIGHT INCREASED [None]
